FAERS Safety Report 12196022 (Version 3)
Quarter: 2017Q2

REPORT INFORMATION
  Report Type: Report from Study
  Country: US (occurrence: US)
  Receive Date: 20160321
  Receipt Date: 20170630
  Transmission Date: 20170830
  Serious: Yes (Death, Hospitalization)
  Sender: FDA-Public Use
  Company Number: US-ACTELION-A-NJ2016-133241

PATIENT
  Age: 70 Year
  Sex: Female
  Weight: 58.96 kg

DRUGS (4)
  1. OPSUMIT [Suspect]
     Active Substance: MACITENTAN
     Indication: PULMONARY HYPERTENSION
     Dosage: 10 MG, QD
     Route: 048
     Dates: start: 20160105
  2. TYVASO [Concomitant]
     Active Substance: TREPROSTINIL
  3. ADCIRCA [Concomitant]
     Active Substance: TADALAFIL
  4. ORENITRAM [Concomitant]
     Active Substance: TREPROSTINIL

REACTIONS (5)
  - Pulmonary hypertension [Unknown]
  - Condition aggravated [Unknown]
  - Pleurisy [Unknown]
  - Right ventricular failure [Unknown]
  - Death [Fatal]

NARRATIVE: CASE EVENT DATE: 201705
